FAERS Safety Report 16217578 (Version 6)
Quarter: 2019Q3

REPORT INFORMATION
  Report Type: Report from Study
  Country: US (occurrence: US)
  Receive Date: 20190419
  Receipt Date: 20190801
  Transmission Date: 20191004
  Serious: Yes (Other)
  Sender: FDA-Public Use
  Company Number: US-SA-2019SA101309

PATIENT
  Sex: Male
  Weight: 62.8 kg

DRUGS (1)
  1. AGALSIDASE BETA [Suspect]
     Active Substance: AGALSIDASE BETA
     Indication: FABRY^S DISEASE
     Dosage: 75 MG, QOW
     Route: 041
     Dates: start: 20120705

REACTIONS (4)
  - Incorrect dose administered [Unknown]
  - Atrial fibrillation [Unknown]
  - Off label use [Unknown]
  - Blood pressure increased [Unknown]
